FAERS Safety Report 23129332 (Version 1)
Quarter: 2023Q4

REPORT INFORMATION
  Report Type: Report from Study
  Country: CA (occurrence: CA)
  Receive Date: 20231031
  Receipt Date: 20231031
  Transmission Date: 20240109
  Serious: Yes (Other)
  Sender: FDA-Public Use
  Company Number: CA-BAYER-2023A140017

PATIENT
  Sex: Female

DRUGS (2)
  1. EYLEA [Suspect]
     Active Substance: AFLIBERCEPT
     Indication: Diabetic retinal oedema
     Dosage: UNK, SOLUTION FOR INJECTION, 40 MG/ML
     Dates: start: 20230605
  2. EYLEA [Suspect]
     Active Substance: AFLIBERCEPT
     Dosage: UNK, SOLUTION FOR INJECTION, 40 MG/ML
     Dates: start: 20230729

REACTIONS (14)
  - Eye haemorrhage [Unknown]
  - Vitreous haemorrhage [Unknown]
  - Glaucomatous optic neuropathy [Unknown]
  - Glaucoma [Unknown]
  - Diabetic retinopathy [Not Recovered/Not Resolved]
  - Iris adhesions [Unknown]
  - Cataract [Unknown]
  - Intraocular pressure increased [Unknown]
  - Retinal laser coagulation [Unknown]
  - Vitreous disorder [Unknown]
  - Retinal disorder [Unknown]
  - Corneal scar [Unknown]
  - Visual impairment [Unknown]
  - Vision blurred [Unknown]

NARRATIVE: CASE EVENT DATE: 20230727
